FAERS Safety Report 5867063-8 (Version None)
Quarter: 2008Q3

REPORT INFORMATION
  Report Type: 
  Country: None (occurrence: None)
  Receive Date: 20080902
  Receipt Date: 20080826
  Transmission Date: 20090109
  Serious: Yes (Disabling)
  Sender: FDA-Public Use
  Company Number: B0533380A

PATIENT
  Sex: Male

DRUGS (2)
  1. SERETIDE [Suspect]
     Indication: CHRONIC OBSTRUCTIVE PULMONARY DISEASE
     Route: 055
     Dates: start: 19970101
  2. SPIRIVA [Concomitant]
     Route: 055
     Dates: start: 20060101

REACTIONS (9)
  - DIARRHOEA [None]
  - DYSPNOEA [None]
  - INCREASED BRONCHIAL SECRETION [None]
  - NAUSEA [None]
  - NEOPLASM [None]
  - STOMACH DISCOMFORT [None]
  - THIRST [None]
  - TRANSIENT ISCHAEMIC ATTACK [None]
  - WEIGHT DECREASED [None]
